FAERS Safety Report 9301171 (Version 1)
Quarter: 2013Q2

REPORT INFORMATION
  Report Type: Spontaneous
  Country: US (occurrence: US)
  Receive Date: 20130521
  Receipt Date: 20130521
  Transmission Date: 20140414
  Serious: Yes (Other)
  Sender: FDA-Public Use
  Company Number: US-GLAXOSMITHKLINE-A1023555A

PATIENT
  Sex: Female

DRUGS (2)
  1. BUPROPION SR [Suspect]
     Indication: WEIGHT DECREASED
     Dosage: 100MG TWICE PER DAY
     Dates: start: 2010
  2. NO CONCURRENT MEDICATION [Concomitant]

REACTIONS (3)
  - Suicidal ideation [Unknown]
  - Body height decreased [Not Recovered/Not Resolved]
  - Vision blurred [Not Recovered/Not Resolved]
